FAERS Safety Report 5822162-1 (Version None)
Quarter: 2008Q3

REPORT INFORMATION
  Report Type: 
  Country: None (occurrence: None)
  Receive Date: 20080725
  Receipt Date: 20080723
  Transmission Date: 20090109
  Serious: Yes (Death, Hospitalization, Disabling)
  Sender: FDA-Public Use
  Company Number: PHHY2008BR14880

PATIENT
  Sex: Male
  Weight: 44 kg

DRUGS (8)
  1. SANDIMMUNE [Suspect]
     Indication: PROPHYLAXIS AGAINST GRAFT VERSUS HOST DISEASE
     Dosage: 200 MG, QD
     Dates: start: 20070723, end: 20070822
  2. ONDANSETRON [Concomitant]
  3. ACYCLOVIR [Concomitant]
  4. FLUCONAZOLE [Concomitant]
  5. URSODIOL [Concomitant]
  6. GRANULOKINE [Concomitant]
  7. CLARITHROMYCIN [Concomitant]
  8. OMEPRAZOLE [Concomitant]

REACTIONS (6)
  - COMA [None]
  - MECHANICAL VENTILATION [None]
  - NEUROLOGICAL SYMPTOM [None]
  - RESPIRATORY DEPRESSION [None]
  - SOMNOLENCE [None]
  - VISUAL IMPAIRMENT [None]
